FAERS Safety Report 5937323-0 (Version None)
Quarter: 2008Q4

REPORT INFORMATION
  Report Type: 
  Country: None (occurrence: None)
  Receive Date: 20081031
  Receipt Date: 20081029
  Transmission Date: 20090506
  Serious: Yes (Life-Threatening, Hospitalization, Other)
  Sender: FDA-Public Use
  Company Number: US-ASTRAZENECA-2008UW24200

PATIENT
  Sex: Female
  Weight: 55 kg

DRUGS (8)
  1. CRESTOR [Suspect]
     Indication: HYPERTRIGLYCERIDAEMIA
     Route: 048
     Dates: start: 20080201
  2. CRESTOR [Suspect]
     Indication: HYPERCHOLESTEROLAEMIA
     Route: 048
     Dates: start: 20080201
  3. ATENOLOL [Concomitant]
     Indication: HYPERTENSION
     Route: 048
     Dates: start: 20070101
  4. LOSARTAN POTASSIUM [Concomitant]
     Indication: HYPERTENSION
     Route: 048
     Dates: start: 20070101
  5. HYGROTON [Concomitant]
     Indication: HYPERTENSION
     Route: 048
     Dates: start: 20070101
  6. SOMALGIN CARDIO [Concomitant]
     Dosage: DAILY
     Route: 048
     Dates: start: 20070101
  7. CLOPIDOGREL BISULFATE [Concomitant]
     Dosage: DAILLY
     Route: 048
     Dates: start: 20070101
  8. LEXOTAN [Concomitant]
     Indication: INSOMNIA
     Dosage: HALF TABLET DAILY
     Route: 048
     Dates: start: 20070101

REACTIONS (7)
  - ANGINA PECTORIS [None]
  - FATIGUE [None]
  - MALAISE [None]
  - MEDICAL DEVICE IMPLANTATION [None]
  - MEMORY IMPAIRMENT [None]
  - STENT PLACEMENT [None]
  - WEIGHT DECREASED [None]
